FAERS Safety Report 9187956 (Version 1)
Quarter: 2013Q1

REPORT INFORMATION
  Report Type: Spontaneous
  Country: IT (occurrence: IT)
  Receive Date: 20130325
  Receipt Date: 20130325
  Transmission Date: 20140127
  Serious: Yes (Disabling)
  Sender: FDA-Public Use
  Company Number: IT-ROCHE-1206160

PATIENT
  Age: 89 Year
  Sex: Female

DRUGS (5)
  1. LUCENTIS [Suspect]
     Indication: AGE-RELATED MACULAR DEGENERATION
     Route: 050
     Dates: start: 20130129, end: 20130129
  2. CARDIOASPIRIN [Concomitant]
  3. ALENDROS [Concomitant]
  4. TRIATEC [Concomitant]
  5. TAPAZOLE [Concomitant]

REACTIONS (1)
  - Visual acuity reduced [Unknown]
